FAERS Safety Report 17929284 (Version 1)
Quarter: 2020Q2

REPORT INFORMATION
  Report Type: Spontaneous
  Country: SI (occurrence: SI)
  Receive Date: 20200623
  Receipt Date: 20200623
  Transmission Date: 20200714
  Serious: Yes (Other)
  Sender: FDA-Public Use
  Company Number: SI-MYLANLABS-2020M1057428

PATIENT
  Age: 73 Year
  Sex: Female

DRUGS (14)
  1. SPASMEX                            /00376202/ [Suspect]
     Active Substance: TROSPIUM CHLORIDE
     Indication: PRODUCT USED FOR UNKNOWN INDICATION
     Dosage: UNK
     Route: 065
  2. IBRANCE [Suspect]
     Active Substance: PALBOCICLIB
     Dosage: 75 MILLIGRAM, QD (75 MG DAILY)
     Route: 065
     Dates: start: 20190813
  3. DENOSUMAB [Suspect]
     Active Substance: DENOSUMAB
     Indication: PRODUCT USED FOR UNKNOWN INDICATION
     Dosage: UNK
     Route: 065
  4. IBRANCE [Suspect]
     Active Substance: PALBOCICLIB
     Indication: PRODUCT USED FOR UNKNOWN INDICATION
     Dosage: 125 MILLIGRAM, QD (125 MG DAILY)
     Route: 065
     Dates: start: 20181108, end: 20181207
  5. IBRANCE [Suspect]
     Active Substance: PALBOCICLIB
     Dosage: 100 MILLIGRAM, QD (100 MG DAILY)
     Route: 065
     Dates: start: 20190315, end: 20190412
  6. IBRANCE [Suspect]
     Active Substance: PALBOCICLIB
     Dosage: 100 MILLIGRAM, QD (100 MG DAILY)
     Route: 065
     Dates: start: 20190705
  7. IBRANCE [Suspect]
     Active Substance: PALBOCICLIB
     Dosage: UNK
     Route: 065
  8. AFINITOR [Suspect]
     Active Substance: EVEROLIMUS
     Indication: PRODUCT USED FOR UNKNOWN INDICATION
     Dosage: UNK
     Route: 065
  9. FEMARA [Suspect]
     Active Substance: LETROZOLE
     Indication: PRODUCT USED FOR UNKNOWN INDICATION
     Dosage: UNK
     Route: 065
  10. AROMAZIN [Suspect]
     Active Substance: EXEMESTANE
     Indication: PRODUCT USED FOR UNKNOWN INDICATION
     Dosage: UNK
     Route: 065
  11. IBRANCE [Suspect]
     Active Substance: PALBOCICLIB
     Dosage: UNK
     Route: 065
  12. FULVESTRANT. [Suspect]
     Active Substance: FULVESTRANT
     Indication: PRODUCT USED FOR UNKNOWN INDICATION
     Dosage: UNK
     Route: 065
  13. IBRANCE [Suspect]
     Active Substance: PALBOCICLIB
     Dosage: 100 MILLIGRAM, QD (100 MG DAILY)
     Route: 065
     Dates: start: 20181220
  14. LOPACUT [Concomitant]
     Indication: PRODUCT USED FOR UNKNOWN INDICATION
     Dosage: UNK
     Route: 065

REACTIONS (24)
  - Hepatic lesion [Unknown]
  - Palpitations [Unknown]
  - Aphthous ulcer [Unknown]
  - Spinal compression fracture [Unknown]
  - Decreased appetite [Unknown]
  - Metastases to bone [Unknown]
  - Acne [Unknown]
  - Rash [Unknown]
  - Metastases to spine [Not Recovered/Not Resolved]
  - Spinal pain [Unknown]
  - Weight decreased [Unknown]
  - Productive cough [Unknown]
  - Abdominal pain upper [Recovering/Resolving]
  - Abdominal pain [Unknown]
  - Neutropenia [Unknown]
  - Pyrexia [Unknown]
  - Bundle branch block left [Recovered/Resolved]
  - Metastases to liver [Unknown]
  - Fractured sacrum [Unknown]
  - Laboratory test abnormal [Unknown]
  - Frequent bowel movements [Unknown]
  - Malignant neoplasm progression [Unknown]
  - General physical health deterioration [Unknown]
  - Diarrhoea [Unknown]
